FAERS Safety Report 11488352 (Version 1)
Quarter: 2015Q3

REPORT INFORMATION
  Report Type: Spontaneous
  Country: US (occurrence: US)
  Receive Date: 20150910
  Receipt Date: 20150910
  Transmission Date: 20151125
  Serious: No
  Sender: FDA-Public Use
  Company Number: US-ROCHE-1455088

PATIENT
  Sex: Female

DRUGS (3)
  1. SOVALDI [Suspect]
     Active Substance: SOFOSBUVIR
     Indication: CHRONIC HEPATITIS C
     Dosage: DAILY
     Route: 065
     Dates: start: 20140718
  2. RIBASPHERE RIBAPAK [Suspect]
     Active Substance: RIBAVIRIN
     Indication: CHRONIC HEPATITIS C
     Dosage: DAILY, IN DIVIDED DOSES 600/400
     Route: 048
     Dates: start: 20140718
  3. PEGASYS [Suspect]
     Active Substance: PEGINTERFERON ALFA-2A
     Indication: CHRONIC HEPATITIS C
     Route: 058
     Dates: start: 20140718

REACTIONS (9)
  - Nausea [Unknown]
  - Retching [Unknown]
  - Vomiting [Unknown]
  - Accidental exposure to product [Unknown]
  - Oral herpes [Unknown]
  - Fatigue [Unknown]
  - Dyspnoea exertional [Unknown]
  - Arthralgia [Unknown]
  - Anaemia [Unknown]
